FAERS Safety Report 23428891 (Version 1)
Quarter: 2024Q1

REPORT INFORMATION
  Report Type: Spontaneous
  Country: CN (occurrence: CN)
  Receive Date: 20240122
  Receipt Date: 20240122
  Transmission Date: 20240409
  Serious: Yes (Hospitalization, Other)
  Sender: FDA-Public Use
  Company Number: CN-PFIZER INC-PV202400007206

PATIENT
  Age: 62 Year
  Sex: Male

DRUGS (3)
  1. LINEZOLID [Suspect]
     Active Substance: LINEZOLID
     Indication: Therapeutic procedure
     Dosage: 300 MG, 2X/DAY
     Route: 048
     Dates: start: 20231127, end: 20240102
  2. FLUCONAZOLE [Concomitant]
     Active Substance: FLUCONAZOLE
     Indication: Therapeutic procedure
     Dosage: 100 MG, 1X/DAY
     Route: 048
     Dates: start: 20231225, end: 20240102
  3. MOXIFLOXACIN HYDROCHLORIDE [Concomitant]
     Active Substance: MOXIFLOXACIN HYDROCHLORIDE\MOXIFLOXACIN HYDROCHLORIDE MONOHYDRATE
     Indication: Therapeutic procedure
     Dosage: 0.4 G, 1X/DAY
     Route: 048
     Dates: start: 20231227, end: 20240102

REACTIONS (6)
  - Hyperlactacidaemia [Recovering/Resolving]
  - Pancreatitis [Unknown]
  - Pyrexia [Unknown]
  - Blood beta-D-glucan positive [Unknown]
  - Off label use [Unknown]
  - Product use issue [Unknown]

NARRATIVE: CASE EVENT DATE: 20231127
